FAERS Safety Report 22000280 (Version 1)
Quarter: 2023Q1

REPORT INFORMATION
  Report Type: Spontaneous
  Country: CN (occurrence: CN)
  Receive Date: 20230216
  Receipt Date: 20230216
  Transmission Date: 20230418
  Serious: Yes (Other)
  Sender: FDA-Public Use
  Company Number: None

PATIENT
  Age: 10 Year
  Sex: Female
  Weight: 36 kg

DRUGS (2)
  1. CYCLOPHOSPHAMIDE [Suspect]
     Active Substance: CYCLOPHOSPHAMIDE
     Indication: Lupus nephritis
     Dosage: 0.5 G, QD, DILUTED WITH 50 ML OF 5 % GLUCOSE
     Route: 041
     Dates: start: 20230203, end: 20230205
  2. DEXTROSE [Suspect]
     Active Substance: DEXTROSE
     Indication: Vehicle solution use
     Dosage: 50 ML, QD, USED TO DILUTE 0.5 G CYCLOPHOSPHAMIDE
     Route: 041
     Dates: start: 20230203, end: 20230205

REACTIONS (6)
  - Electrolyte imbalance [Recovering/Resolving]
  - Vomiting [Recovering/Resolving]
  - Seizure [Recovering/Resolving]
  - Abdominal pain [Recovering/Resolving]
  - Diarrhoea [Recovering/Resolving]
  - General physical health deterioration [Recovering/Resolving]

NARRATIVE: CASE EVENT DATE: 20230205
